FAERS Safety Report 11626684 (Version 1)
Quarter: 2015Q4

REPORT INFORMATION
  Report Type: Report from Study
  Country: US (occurrence: US)
  Receive Date: 20151013
  Receipt Date: 20151013
  Transmission Date: 20160304
  Serious: Yes (Other)
  Sender: FDA-Public Use
  Company Number: US-NAPPMUNDI-USA-2015-0126651

PATIENT
  Age: 1 Year
  Sex: Female

DRUGS (1)
  1. OXYCONTIN [Suspect]
     Active Substance: OXYCODONE HYDROCHLORIDE
     Indication: PRODUCT USED FOR UNKNOWN INDICATION
     Dosage: 15 MG, SINGLE
     Route: 048

REACTIONS (4)
  - Pallor [Unknown]
  - Respiratory rate decreased [Unknown]
  - Accidental exposure to product by child [Unknown]
  - Somnolence [Unknown]

NARRATIVE: CASE EVENT DATE: 20101015
